FAERS Safety Report 25855363 (Version 1)
Quarter: 2025Q3

REPORT INFORMATION
  Report Type: Spontaneous
  Country: US (occurrence: US)
  Receive Date: 20250927
  Receipt Date: 20250927
  Transmission Date: 20251020
  Serious: No
  Sender: VIIV
  Company Number: US-GSKCCFUS-Case-02377337_AE-125540

PATIENT
  Sex: Female

DRUGS (1)
  1. TIVICAY [Suspect]
     Active Substance: DOLUTEGRAVIR SODIUM
     Indication: Prophylaxis against HIV infection

REACTIONS (2)
  - Product dose omission issue [Unknown]
  - Off label use [Unknown]
